FAERS Safety Report 12308166 (Version 1)
Quarter: 2016Q2

REPORT INFORMATION
  Report Type: Report from Study
  Country: CA (occurrence: CA)
  Receive Date: 20160426
  Receipt Date: 20160426
  Transmission Date: 20160815
  Serious: Yes (Other)
  Sender: FDA-Public Use
  Company Number: CA-GILEAD-2015-0184395

PATIENT
  Age: 63 Year
  Sex: Female

DRUGS (13)
  1. IBAVYR [Suspect]
     Active Substance: RIBAVIRIN
     Indication: HEPATITIS C
     Dosage: 1400 MG, UNK
     Route: 048
     Dates: start: 20151023, end: 201511
  2. IBAVYR [Suspect]
     Active Substance: RIBAVIRIN
     Dosage: 200 MG, QD
     Route: 048
     Dates: start: 201511
  3. MELOXICAM. [Concomitant]
     Active Substance: MELOXICAM
  4. TIZANIDINE. [Concomitant]
     Active Substance: TIZANIDINE
  5. IBAVYR [Suspect]
     Active Substance: RIBAVIRIN
     Dosage: 200 MG, BID
     Route: 048
     Dates: start: 201511, end: 201511
  6. CLONAZEPAM. [Concomitant]
     Active Substance: CLONAZEPAM
  7. PANTOPRAZOLE [Concomitant]
     Active Substance: PANTOPRAZOLE SODIUM
  8. MAGNESIUM OXIDE. [Concomitant]
     Active Substance: MAGNESIUM OXIDE
  9. GLYCERIN                           /00200601/ [Concomitant]
     Active Substance: GLYCERIN
  10. HYDROMORPHONE [Concomitant]
     Active Substance: HYDROMORPHONE
  11. DIAZOXIDE [Concomitant]
     Active Substance: DIAZOXIDE
  12. SOFOSBUVIR [Suspect]
     Active Substance: SOFOSBUVIR
     Indication: HEPATITIS C
     Dosage: 400 MG, QD
     Route: 048
     Dates: start: 20151023
  13. LYRICA [Concomitant]
     Active Substance: PREGABALIN

REACTIONS (11)
  - Feeling abnormal [Unknown]
  - Headache [Unknown]
  - Malaise [Unknown]
  - Fatigue [Unknown]
  - Emotional disorder [Unknown]
  - Bedridden [Unknown]
  - Asthenia [Unknown]
  - Abdominal pain upper [Unknown]
  - Dizziness [Unknown]
  - Haemoglobin decreased [Unknown]
  - Crying [Unknown]

NARRATIVE: CASE EVENT DATE: 2015
